FAERS Safety Report 19655910 (Version 1)
Quarter: 2021Q3

REPORT INFORMATION
  Report Type: Spontaneous
  Country: US (occurrence: US)
  Receive Date: 20210802
  Receipt Date: 20210802
  Transmission Date: 20211014
  Serious: No
  Sender: FDA-Public Use
  Company Number: None

PATIENT

DRUGS (2)
  1. VITAMIN B12 [Suspect]
     Active Substance: CYANOCOBALAMIN
     Route: 048
  2. VITAMIN B12 [Suspect]
     Active Substance: CYANOCOBALAMIN
     Route: 048

REACTIONS (2)
  - Product supply issue [None]
  - Prescription form tampering [None]
